FAERS Safety Report 9849599 (Version 1)
Quarter: 2014Q1

REPORT INFORMATION
  Report Type: Spontaneous
  Country: US (occurrence: None)
  Receive Date: 20140124
  Receipt Date: 20140124
  Transmission Date: 20141002
  Serious: Yes (Hospitalization)
  Sender: FDA-Public Use
  Company Number: 2014NUEUSA00276

PATIENT
  Sex: Male

DRUGS (4)
  1. NUEDEXTA (DEXTROMETHORPHAN HYDROBROMIDE 20 MG, QUINIDINE SULFATE 10 MG) CAPSULE, 20/10MG [Suspect]
     Indication: AFFECT LABILITY
     Dates: start: 201312, end: 201312
  2. ASPIRIN (ACETYLSALICYLIC ACID) [Concomitant]
  3. MULTIVITAMIN (VITAMINS NOS) [Concomitant]
  4. ACE INHIBITORS [Concomitant]

REACTIONS (9)
  - Convulsion [None]
  - Fall [None]
  - Dizziness [None]
  - Wheelchair user [None]
  - Blood sodium increased [None]
  - Blood potassium decreased [None]
  - Blood magnesium decreased [None]
  - Loss of consciousness [None]
  - Postictal state [None]
